FAERS Safety Report 6575077-8 (Version None)
Quarter: 2010Q1

REPORT INFORMATION
  Report Type: 
  Country: None (occurrence: None)
  Receive Date: 20100209
  Receipt Date: 20100204
  Transmission Date: 20100710
  Serious: Yes (Life-Threatening)
  Sender: FDA-Public Use
  Company Number: IT-SANOFI-AVENTIS-2009SA011156

PATIENT
  Age: 59 Year
  Sex: Female

DRUGS (5)
  1. TAXOTERE [Suspect]
     Route: 042
     Dates: start: 20091211, end: 20091211
  2. TAXOTERE [Suspect]
     Route: 042
     Dates: start: 20091120, end: 20091120
  3. SOLDESAM [Concomitant]
     Indication: PREMEDICATION
     Route: 065
     Dates: start: 20091211, end: 20091211
  4. KYTRIL [Concomitant]
     Indication: PREMEDICATION
     Route: 065
  5. NEXIUM /UNK/ [Concomitant]
     Indication: PROPHYLAXIS AGAINST GASTROINTESTINAL ULCER
     Route: 048

REACTIONS (5)
  - CONVULSION [None]
  - CYANOSIS [None]
  - PULSE ABSENT [None]
  - RESPIRATORY ARREST [None]
  - THROAT TIGHTNESS [None]
